FAERS Safety Report 5682246-8 (Version None)
Quarter: 2008Q1

REPORT INFORMATION
  Report Type: 
  Country: None (occurrence: None)
  Receive Date: 20080326
  Receipt Date: 20080326
  Transmission Date: 20080703
  Serious: Yes (Other)
  Sender: FDA-Public Use
  Company Number: None

PATIENT
  Sex: Female
  Weight: 87.5442 kg

DRUGS (1)
  1. REMICADE [Suspect]
     Indication: PSORIATIC ARTHROPATHY
     Dosage: 300 MG EVERY 6 WK IV
     Route: 042
     Dates: start: 20080227

REACTIONS (4)
  - BACK PAIN [None]
  - DIZZINESS [None]
  - FEELING HOT [None]
  - INFUSION RELATED REACTION [None]
